FAERS Safety Report 23912849 (Version 1)
Quarter: 2024Q2

REPORT INFORMATION
  Report Type: Report from Study
  Country: CL (occurrence: CL)
  Receive Date: 20240529
  Receipt Date: 20240529
  Transmission Date: 20240716
  Serious: Yes (Other)
  Sender: FDA-Public Use
  Company Number: CL-ABBVIE-5775075

PATIENT
  Sex: Female

DRUGS (1)
  1. HUMIRA [Suspect]
     Active Substance: ADALIMUMAB
     Indication: Rheumatoid arthritis
     Dosage: FORM STRENGTH: 40 MILLIGRAM?ADDITIONAL COMMENTS: IT WASN^T AVAILABLE DURING THE CALL
     Route: 058
     Dates: start: 20170309, end: 20230301

REACTIONS (4)
  - Rotator cuff syndrome [Recovering/Resolving]
  - Arthritis [Recovered/Resolved]
  - Joint range of motion decreased [Recovering/Resolving]
  - Procedural pain [Not Recovered/Not Resolved]

NARRATIVE: CASE EVENT DATE: 20200101
